FAERS Safety Report 5368269-7 (Version None)
Quarter: 2007Q2

REPORT INFORMATION
  Report Type: 
  Country: None (occurrence: None)
  Receive Date: 20070619
  Receipt Date: 20070606
  Transmission Date: 20071010
  Serious: Yes (Disabling)
  Sender: FDA-Public Use
  Company Number: 2217-141

PATIENT
  Age: 62 Year
  Sex: Female

DRUGS (1)
  1. TRIAMCINOLONE ACETONIDE [Suspect]
     Indication: MACULAR OEDEMA

REACTIONS (9)
  - ANTERIOR CHAMBER DISORDER [None]
  - CONJUNCTIVITIS [None]
  - DRUG RESISTANCE [None]
  - EYE ABSCESS [None]
  - HYPOPYON [None]
  - PSEUDALLESCHERIA INFECTION [None]
  - PULMONARY TUBERCULOSIS [None]
  - RETINAL DETACHMENT [None]
  - VITREOUS OPACITIES [None]
